FAERS Safety Report 6567285-7 (Version None)
Quarter: 2010Q1

REPORT INFORMATION
  Report Type: 
  Country: None (occurrence: None)
  Receive Date: 20100202
  Receipt Date: 20100128
  Transmission Date: 20100710
  Serious: Yes (Other)
  Sender: FDA-Public Use
  Company Number: AU-RB-001539-10

PATIENT
  Sex: Female

DRUGS (1)
  1. NORSPAN 20 [Suspect]
     Indication: OSTEOARTHRITIS
     Dosage: 20 MICROGRAM PER HOUR
     Route: 062
     Dates: start: 20080815, end: 20090306

REACTIONS (1)
  - UNRESPONSIVE TO STIMULI [None]
